FAERS Safety Report 7215510-1 (Version None)
Quarter: 2011Q1

REPORT INFORMATION
  Report Type: 
  Country: None (occurrence: None)
  Receive Date: 20110107
  Receipt Date: 20101228
  Transmission Date: 20110831
  Serious: Yes (Hospitalization)
  Sender: FDA-Public Use
  Company Number: B0690228A

PATIENT
  Sex: Female
  Weight: 66 kg

DRUGS (7)
  1. DEPAKENE [Suspect]
     Indication: EPILEPSY
     Dosage: 2G PER DAY
     Route: 048
     Dates: start: 20101117, end: 20101224
  2. ZANTAC [Concomitant]
     Indication: PROPHYLAXIS
     Dosage: 150MG PER DAY
     Dates: start: 20101217
  3. STRUMAZOL [Concomitant]
     Indication: HYPERTHYROIDISM
     Dosage: 30MG PER DAY
     Dates: start: 20101128, end: 20101220
  4. LAMICTAL [Suspect]
     Indication: EPILEPSY
     Dosage: 12.5MG PER DAY
     Route: 048
     Dates: start: 20101207, end: 20101211
  5. INDERAL [Concomitant]
     Indication: HYPERTHYROIDISM
     Dosage: 120MG PER DAY
     Dates: start: 20101117
  6. LITICAN [Concomitant]
     Indication: NAUSEA
     Dosage: 150MG PER DAY
     Dates: start: 20101127
  7. WARFARIN [Concomitant]
     Dates: start: 20101130

REACTIONS (7)
  - ABDOMINAL PAIN [None]
  - HEPATIC ENZYME INCREASED [None]
  - RASH GENERALISED [None]
  - ABDOMINAL PAIN UPPER [None]
  - JAUNDICE [None]
  - HEPATITIS TOXIC [None]
  - NAUSEA [None]
